FAERS Safety Report 9805675 (Version 1)
Quarter: 2014Q1

REPORT INFORMATION
  Report Type: Spontaneous
  Country: US (occurrence: None)
  Receive Date: 20140108
  Receipt Date: 20140108
  Transmission Date: 20141002
  Serious: Yes (Other)
  Sender: FDA-Public Use
  Company Number: None

PATIENT
  Age: 68 Year
  Sex: Male

DRUGS (1)
  1. VELCADE MILLENNIUM [Suspect]
     Indication: PLASMA CELL MYELOMA
     Dates: start: 20130402, end: 20131219

REACTIONS (1)
  - Neuropathy peripheral [None]
